FAERS Safety Report 16261661 (Version 6)
Quarter: 2020Q1

REPORT INFORMATION
  Report Type: Spontaneous
  Country: US (occurrence: US)
  Receive Date: 20190501
  Receipt Date: 20200113
  Transmission Date: 20200409
  Serious: Yes (Death, Hospitalization)
  Sender: FDA-Public Use
  Company Number: US-LEXICON PHARMACEUTICALS, INC-19-1606-00454

PATIENT
  Age: 68 Year
  Sex: Female

DRUGS (2)
  1. TELOTRISTAT ETHYL [Suspect]
     Active Substance: TELOTRISTAT ETHYL
     Indication: CARCINOID SYNDROME
     Route: 048
     Dates: start: 20170516
  2. SOMATULINE [Concomitant]
     Active Substance: LANREOTIDE ACETATE
     Route: 065

REACTIONS (15)
  - Hospitalisation [Recovered/Resolved]
  - Platelet count decreased [Not Recovered/Not Resolved]
  - Asthenia [Unknown]
  - Abdominal pain [Unknown]
  - Decreased appetite [Unknown]
  - Intestinal obstruction [Unknown]
  - Hospitalisation [Recovered/Resolved]
  - Hospitalisation [Unknown]
  - Death [Fatal]
  - Fatigue [Not Recovered/Not Resolved]
  - Flushing [Not Recovered/Not Resolved]
  - Diarrhoea [Not Recovered/Not Resolved]
  - White blood cell count decreased [Not Recovered/Not Resolved]
  - Malaise [Not Recovered/Not Resolved]
  - Product dose omission [Unknown]

NARRATIVE: CASE EVENT DATE: 20190912
